FAERS Safety Report 7810745-9 (Version None)
Quarter: 2011Q4

REPORT INFORMATION
  Report Type: 
  Country: None (occurrence: None)
  Receive Date: 20111006
  Receipt Date: 20110926
  Transmission Date: 20120403
  Serious: Yes (Other)
  Sender: FDA-Public Use
  Company Number: 2011HGS-002579

PATIENT
  Age: 52 Year
  Sex: Male
  Weight: 143.7903 kg

DRUGS (2)
  1. BENLYSTA [Suspect]
     Indication: SYSTEMIC LUPUS ERYTHEMATOSUS
     Dosage: 10 MG/KG, 1 IN 28 D, INTRAVENOUS DRIP
     Route: 041
     Dates: start: 20110914, end: 20110914
  2. PREDNISONE [Concomitant]

REACTIONS (6)
  - DYSPNOEA [None]
  - PRURITUS [None]
  - WHEEZING [None]
  - CHEST PAIN [None]
  - RASH [None]
  - INFUSION RELATED REACTION [None]
